FAERS Safety Report 9210409 (Version 2)
Quarter: 2013Q2

REPORT INFORMATION
  Report Type: Spontaneous
  Country: DE (occurrence: DE)
  Receive Date: 20130404
  Receipt Date: 20130510
  Transmission Date: 20140414
  Serious: Yes (Other)
  Sender: FDA-Public Use
  Company Number: DE-TEVA-394425GER

PATIENT
  Age: 8 Week
  Sex: Female

DRUGS (1)
  1. COPAXONE [Suspect]
     Route: 064

REACTIONS (1)
  - Foetal chromosome abnormality [Unknown]
